FAERS Safety Report 16159215 (Version 1)
Quarter: 2019Q2

REPORT INFORMATION
  Report Type: Spontaneous
  Country: US (occurrence: US)
  Receive Date: 20190404
  Receipt Date: 20190404
  Transmission Date: 20190711
  Serious: No
  Sender: FDA-Public Use
  Company Number: US-REGENERON PHARMACEUTICALS, INC.-2019-19860

PATIENT

DRUGS (2)
  1. OXYCONTIN [Concomitant]
     Active Substance: OXYCODONE HYDROCHLORIDE
     Indication: CANCER PAIN
     Dosage: 240 MG, UNK
  2. LIBTAYO [Suspect]
     Active Substance: CEMIPLIMAB-RWLC
     Indication: SQUAMOUS CELL CARCINOMA
     Dosage: 350 MG, Q3W

REACTIONS (2)
  - Neck pain [Unknown]
  - Ear pain [Unknown]

NARRATIVE: CASE EVENT DATE: 20190221
